FAERS Safety Report 5726012-3 (Version None)
Quarter: 2008Q2

REPORT INFORMATION
  Report Type: 
  Country: None (occurrence: None)
  Receive Date: 20080502
  Receipt Date: 20080423
  Transmission Date: 20081010
  Serious: Yes (Hospitalization)
  Sender: FDA-Public Use
  Company Number: PHHO2008CZ05327

PATIENT
  Age: 64 Year
  Sex: Female
  Weight: 95 kg

DRUGS (2)
  1. NATEGLINIDE [Suspect]
     Indication: GLUCOSE TOLERANCE IMPAIRED
     Dosage: 60 MG
     Route: 048
     Dates: start: 20031023
  2. PLACEBO OR VALSARTAN [Suspect]
     Indication: CARDIOVASCULAR DISORDER
     Dosage: DOUBLE BLIND
     Route: 048
     Dates: start: 20031023

REACTIONS (1)
  - RENAL FAILURE ACUTE [None]
